FAERS Safety Report 24566165 (Version 2)
Quarter: 2024Q4

REPORT INFORMATION
  Report Type: Spontaneous
  Country: FR (occurrence: FR)
  Receive Date: 20241030
  Receipt Date: 20241112
  Transmission Date: 20250115
  Serious: Yes (Hospitalization)
  Sender: MYLAN
  Company Number: FR-AUROBINDO-AUR-APL-2024-050248

PATIENT
  Age: 74 Year
  Sex: Female

DRUGS (2)
  1. OLANZAPINE [Suspect]
     Active Substance: OLANZAPINE
     Indication: Bipolar disorder
     Dosage: 7.5 MILLIGRAM, QD (DAILY)
     Route: 065
  2. CYAMEMAZINE [Suspect]
     Active Substance: CYAMEMAZINE
     Indication: Bipolar disorder
     Dosage: 30 MILLIGRAM, QD (DAILY)
     Route: 065

REACTIONS (1)
  - General physical health deterioration [Recovering/Resolving]
